FAERS Safety Report 18226259 (Version 1)
Quarter: 2020Q3

REPORT INFORMATION
  Report Type: Spontaneous
  Country: US (occurrence: US)
  Receive Date: 20200902
  Receipt Date: 20200902
  Transmission Date: 20201103
  Serious: Yes (Hospitalization)
  Sender: FDA-Public Use
  Company Number: None

PATIENT
  Sex: Male

DRUGS (1)
  1. PROMETHAZINE [Suspect]
     Active Substance: PROMETHAZINE HYDROCHLORIDE
     Indication: HEPATOCELLULAR CARCINOMA
     Dosage: ?          OTHER FREQUENCY:ONCE EVERY 4 HOURS;?
     Route: 048
     Dates: start: 20200404

REACTIONS (1)
  - Hospitalisation [None]
